FAERS Safety Report 4761954-7 (Version None)
Quarter: 2005Q3

REPORT INFORMATION
  Report Type: 
  Country: None (occurrence: None)
  Receive Date: 20050906
  Receipt Date: 20050830
  Transmission Date: 20060218
  Serious: Yes (Hospitalization)
  Sender: FDA-Public Use
  Company Number: US-MERCK-0508USA04729

PATIENT
  Sex: Male

DRUGS (1)
  1. CRIXIVAN [Suspect]
     Indication: HIV INFECTION
     Route: 048

REACTIONS (2)
  - ADVERSE EVENT [None]
  - DRUG ADMINISTRATION ERROR [None]
